FAERS Safety Report 4701819-X (Version None)
Quarter: 2005Q2

REPORT INFORMATION
  Report Type: 
  Country: None (occurrence: None)
  Receive Date: 20050624
  Receipt Date: 20050308
  Transmission Date: 20051028
  Serious: No
  Sender: FDA-Public Use
  Company Number: 2005BI005384

PATIENT
  Age: 49 Year
  Sex: Female

DRUGS (1)
  1. NATALIZUMAB [Suspect]
     Indication: MULTIPLE SCLEROSIS
     Dosage: 300 MG; QM;  IV
     Route: 042
     Dates: start: 20050127, end: 20050201

REACTIONS (6)
  - BALANCE DISORDER [None]
  - BLEEDING TIME PROLONGED [None]
  - FALL [None]
  - FEELING ABNORMAL [None]
  - MONOPLEGIA [None]
  - SPINAL COMPRESSION FRACTURE [None]
